FAERS Safety Report 8408108-0 (Version None)
Quarter: 2012Q2

REPORT INFORMATION
  Report Type: 
  Country: None (occurrence: None)
  Receive Date: 20120604
  Receipt Date: 20120524
  Transmission Date: 20120825
  Serious: Yes (Death, Hospitalization, Other)
  Sender: FDA-Public Use
  Company Number: PH-BRISTOL-MYERS SQUIBB COMPANY-13271044

PATIENT
  Age: 42 Year
  Sex: Female

DRUGS (7)
  1. HYDROXYUREA [Concomitant]
  2. DASATINIB [Suspect]
     Indication: CHRONIC MYELOID LEUKAEMIA
     Dosage: 140MG: 08-19NOV05, 23-29NOV05 100MG: 20DEC AND 08-09JAN06 80MG: 23JAN06
     Route: 048
     Dates: start: 20051108, end: 20051119
  3. DASATINIB [Suspect]
     Route: 048
     Dates: start: 20051220, end: 20051220
  4. DASATINIB [Suspect]
     Route: 048
     Dates: start: 20051123, end: 20051129
  5. DASATINIB [Suspect]
     Route: 048
     Dates: start: 20060108, end: 20060109
  6. DASATINIB [Suspect]
     Route: 048
     Dates: start: 20060123, end: 20060123
  7. BUSULFAN [Suspect]

REACTIONS (9)
  - BLAST CRISIS IN MYELOGENOUS LEUKAEMIA [None]
  - PERICARDIAL EFFUSION [None]
  - THROMBOCYTOPENIA [None]
  - PULMONARY HYPERTENSION [None]
  - ACUTE RESPIRATORY FAILURE [None]
  - PERIODONTAL INFECTION [None]
  - PULMONARY HAEMORRHAGE [None]
  - FEBRILE NEUTROPENIA [None]
  - URINARY TRACT INFECTION [None]
